FAERS Safety Report 19120543 (Version 1)
Quarter: 2021Q2

REPORT INFORMATION
  Report Type: Spontaneous
  Country: US (occurrence: US)
  Receive Date: 20210409
  Receipt Date: 20210409
  Transmission Date: 20210717
  Serious: Yes (Hospitalization)
  Sender: FDA-Public Use
  Company Number: None

PATIENT
  Age: 13 Year
  Sex: Male
  Weight: 87.9 kg

DRUGS (3)
  1. METHOTREXATE. [Concomitant]
     Active Substance: METHOTREXATE
     Dates: start: 20210217
  2. VINCRISTINE [Concomitant]
     Active Substance: VINCRISTINE
     Dates: start: 20210203
  3. ONCASPAR [Suspect]
     Active Substance: PEGASPARGASE
     Indication: T-CELL TYPE ACUTE LEUKAEMIA
     Dosage: ?          OTHER FREQUENCY:ONCE;?
     Route: 042
     Dates: start: 20210206, end: 20210405

REACTIONS (9)
  - Hypertension [None]
  - Electrocardiogram QT prolonged [None]
  - Abdominal pain upper [None]
  - Dyspnoea [None]
  - Tachycardia [None]
  - Infusion related reaction [None]
  - Feeling abnormal [None]
  - Musculoskeletal discomfort [None]
  - Vomiting [None]

NARRATIVE: CASE EVENT DATE: 20210405
